FAERS Safety Report 5150469-2 (Version None)
Quarter: 2006Q4

REPORT INFORMATION
  Report Type: 
  Country: None (occurrence: None)
  Receive Date: 20061114
  Receipt Date: 20061102
  Transmission Date: 20070319
  Serious: Yes (Other)
  Sender: FDA-Public Use
  Company Number: 2006SE05976

PATIENT
  Age: 17234 Day
  Sex: Female
  Weight: 53 kg

DRUGS (1)
  1. CRESTOR [Suspect]
     Indication: HYPERCHOLESTEROLAEMIA
     Route: 048
     Dates: start: 20061006, end: 20061020

REACTIONS (6)
  - JAUNDICE [None]
  - MYALGIA [None]
  - NAUSEA [None]
  - OCULAR DISCOMFORT [None]
  - PYREXIA [None]
  - RASH [None]
